FAERS Safety Report 11189174 (Version 1)
Quarter: 2015Q2

REPORT INFORMATION
  Report Type: Spontaneous
  Country: BR (occurrence: BR)
  Receive Date: 20150615
  Receipt Date: 20150615
  Transmission Date: 20150821
  Serious: Yes (Other)
  Sender: FDA-Public Use
  Company Number: BR-SA-2014SA114555

PATIENT
  Sex: Female
  Weight: 60 kg

DRUGS (3)
  1. UTROGESTAN [Concomitant]
     Active Substance: PROGESTERONE
     Indication: PREGNANCY
     Route: 067
     Dates: start: 2014
  2. EUTHYROX [Concomitant]
     Active Substance: LEVOTHYROXINE SODIUM
     Indication: HYPOTHYROIDISM
     Dosage: DOSE: ONCE IN MORNINIG EMPTY STOMACH
     Route: 048
     Dates: start: 2010
  3. CLEXANE [Suspect]
     Active Substance: ENOXAPARIN SODIUM
     Indication: HYPERCOAGULATION
     Dosage: STRENGTH- 40 MG?DOSE:1 TIME A DAY?THERAPY STOPPED:2014
     Route: 058
     Dates: start: 20140819

REACTIONS (6)
  - Premature delivery [Unknown]
  - Exposure during pregnancy [Unknown]
  - Premature rupture of membranes [Unknown]
  - Application site erythema [Recovered/Resolved]
  - Hypersensitivity [Unknown]
  - Application site pruritus [Recovered/Resolved]

NARRATIVE: CASE EVENT DATE: 20150307
